FAERS Safety Report 7444230-3 (Version None)
Quarter: 2011Q2

REPORT INFORMATION
  Report Type: 
  Country: None (occurrence: None)
  Receive Date: 20110429
  Receipt Date: 20101101
  Transmission Date: 20111010
  Serious: Yes (Life-Threatening, Hospitalization, Disabling)
  Sender: FDA-Public Use
  Company Number: US-BAYER-201029768NA

PATIENT
  Age: 25 Year
  Sex: Female
  Weight: 53.515 kg

DRUGS (4)
  1. PLAVIX [Concomitant]
  2. BROMOCRIPTINE MESYLATE [Concomitant]
  3. DROSPIRENONE AND ETHINYL ESTRADIOL [Suspect]
     Dosage: UNK
     Route: 048
     Dates: start: 20030527, end: 20050123
  4. MULTI-VITAMINS [Concomitant]

REACTIONS (14)
  - MUSCULAR WEAKNESS [None]
  - VITH NERVE PARALYSIS [None]
  - HEADACHE [None]
  - GAIT DISTURBANCE [None]
  - DIZZINESS [None]
  - VOMITING [None]
  - NYSTAGMUS [None]
  - VIITH NERVE PARALYSIS [None]
  - DEPRESSION [None]
  - CEREBROVASCULAR ACCIDENT [None]
  - NAUSEA [None]
  - DYSARTHRIA [None]
  - DYSPHONIA [None]
  - GAZE PALSY [None]
